FAERS Safety Report 20033559 (Version 1)
Quarter: 2021Q4

REPORT INFORMATION
  Report Type: Report from Study
  Country: NL (occurrence: NL)
  Receive Date: 20211104
  Receipt Date: 20211104
  Transmission Date: 20220303
  Serious: Yes (Other)
  Sender: FDA-Public Use
  Company Number: NL-NOVARTISPH-NVSC2021NL249930

PATIENT
  Age: 74 Year
  Sex: Female

DRUGS (3)
  1. OCTREOTIDE ACETATE [Suspect]
     Active Substance: OCTREOTIDE ACETATE
     Indication: Angiodysplasia
     Dosage: UNK, Q4W (1.00 PER 4 WEEKS) (ZINR: 14127563)
     Route: 030
     Dates: start: 20210920
  2. OCTREOTIDE ACETATE [Suspect]
     Active Substance: OCTREOTIDE ACETATE
  3. OCTREOTIDE ACETATE [Suspect]
     Active Substance: OCTREOTIDE ACETATE

REACTIONS (6)
  - Pneumonia [Recovering/Resolving]
  - Cystitis noninfective [Recovered/Resolved]
  - Bowel movement irregularity [Unknown]
  - Pneumonitis [Unknown]
  - Faeces discoloured [Unknown]
  - Product use in unapproved indication [Unknown]

NARRATIVE: CASE EVENT DATE: 20211007
